FAERS Safety Report 23889400 (Version 1)
Quarter: 2024Q2

REPORT INFORMATION
  Report Type: Spontaneous
  Country: FR (occurrence: FR)
  Receive Date: 20240523
  Receipt Date: 20240523
  Transmission Date: 20240715
  Serious: Yes (Hospitalization)
  Sender: FDA-Public Use
  Company Number: None

PATIENT
  Age: 3 Year
  Sex: Male
  Weight: 18 kg

DRUGS (14)
  1. VINCRISTINE [Suspect]
     Active Substance: VINCRISTINE
     Dosage: 0.99 MG
     Route: 042
     Dates: start: 20240329, end: 20240329
  2. VINCRISTINE [Suspect]
     Active Substance: VINCRISTINE
     Dosage: 0.99 MG
     Route: 042
     Dates: start: 20240403, end: 20240403
  3. CYTARABINE [Suspect]
     Active Substance: CYTARABINE
     Indication: T-cell type acute leukaemia
     Dosage: 30 MG
     Route: 037
     Dates: start: 20240326, end: 20240326
  4. CYTARABINE [Suspect]
     Active Substance: CYTARABINE
     Dosage: 30 MG
     Route: 037
     Dates: start: 20240405, end: 20240405
  5. CYTARABINE [Suspect]
     Active Substance: CYTARABINE
     Dosage: 30 MG
     Route: 037
     Dates: start: 20240409, end: 20240409
  6. HYDROCORTISONE [Suspect]
     Active Substance: HYDROCORTISONE
     Indication: T-cell type acute leukaemia
     Dosage: 15 MG
     Route: 037
     Dates: start: 20240326, end: 20240326
  7. HYDROCORTISONE [Suspect]
     Active Substance: HYDROCORTISONE
     Dosage: 15 MG
     Route: 037
     Dates: start: 20240405, end: 20240405
  8. HYDROCORTISONE [Suspect]
     Active Substance: HYDROCORTISONE
     Dosage: 15 MG
     Route: 037
     Dates: start: 20240409, end: 20240409
  9. METHOTREXATE [Suspect]
     Active Substance: METHOTREXATE
     Indication: T-cell type acute leukaemia
     Dosage: 12 MG
     Route: 037
     Dates: start: 20240326, end: 20240326
  10. METHOTREXATE [Suspect]
     Active Substance: METHOTREXATE
     Dosage: 12 MG
     Route: 037
     Dates: start: 20240405, end: 20240405
  11. METHOTREXATE [Suspect]
     Active Substance: METHOTREXATE
     Dosage: 12 MG
     Route: 037
     Dates: start: 20240409, end: 20240409
  12. ONCASPAR [Suspect]
     Active Substance: PEGASPARGASE
     Indication: T-cell type acute leukaemia
     Dosage: 663 IU
     Route: 042
     Dates: start: 20240401
  13. METHOTREXATE [Suspect]
     Active Substance: METHOTREXATE
     Indication: T-cell type acute leukaemia
     Dosage: 2980 MG
     Route: 042
     Dates: start: 20240329, end: 20240329
  14. DEXAMETHASONE [Concomitant]
     Active Substance: DEXAMETHASONE
     Indication: T-cell type acute leukaemia
     Dosage: 10 MG/M2, 1X/DAY
     Route: 042
     Dates: start: 20240326, end: 20240402

REACTIONS (1)
  - Leukoencephalopathy [Not Recovered/Not Resolved]

NARRATIVE: CASE EVENT DATE: 20240414
